FAERS Safety Report 4791247-3 (Version None)
Quarter: 2005Q4

REPORT INFORMATION
  Report Type: 
  Country: None (occurrence: None)
  Receive Date: 20051007
  Receipt Date: 20050916
  Transmission Date: 20060501
  Serious: Yes (Hospitalization)
  Sender: FDA-Public Use
  Company Number: US-ABBOTT-05P-163-0311158-00

PATIENT
  Sex: Female

DRUGS (12)
  1. BIAXIN [Suspect]
     Indication: ABSCESS LIMB
     Route: 065
  2. BYETTA [Suspect]
     Indication: DIABETES MELLITUS NON-INSULIN-DEPENDENT
     Route: 058
     Dates: start: 20050701, end: 20050705
  3. GLIPIZIDE [Concomitant]
     Indication: DRUG USE FOR UNKNOWN INDICATION
  4. METFORMIN HYDROCHLORIDE [Concomitant]
     Indication: DRUG USE FOR UNKNOWN INDICATION
  5. INSULIN GLARGINE [Concomitant]
     Indication: DRUG USE FOR UNKNOWN INDICATION
  6. METOPROLOL SUCCINATE [Concomitant]
     Indication: DRUG USE FOR UNKNOWN INDICATION
  7. ATORVASTATIN [Concomitant]
     Indication: DRUG USE FOR UNKNOWN INDICATION
  8. LISINOPRIL [Concomitant]
     Indication: DRUG USE FOR UNKNOWN INDICATION
  9. HYDROCHLOROTHIAZIDE [Concomitant]
     Indication: DRUG USE FOR UNKNOWN INDICATION
  10. ASPIRIN [Concomitant]
     Indication: DRUG USE FOR UNKNOWN INDICATION
  11. MULTI-VITAMINS [Concomitant]
     Indication: DRUG USE FOR UNKNOWN INDICATION
  12. HYDROCHLORIDE/RETINOL/RIBOFLAVIN/NICOTINAMIDE [Concomitant]
     Indication: DRUG USE FOR UNKNOWN INDICATION

REACTIONS (4)
  - DECREASED APPETITE [None]
  - NAUSEA [None]
  - RENAL FAILURE ACUTE [None]
  - VOMITING [None]
